FAERS Safety Report 8675486 (Version 2)
Quarter: 2013Q4

REPORT INFORMATION
  Report Type: Spontaneous
  Country: US (occurrence: US)
  Receive Date: 20120720
  Receipt Date: 20131101
  Transmission Date: 20140711
  Serious: No
  Sender: FDA-Public Use
  Company Number: US-009507513-1207USA004549

PATIENT
  Age: 50 Year
  Sex: Female

DRUGS (3)
  1. SAPHRIS [Suspect]
     Indication: MAJOR DEPRESSION
     Dosage: 5 MG, BID
     Route: 060
  2. SAPHRIS [Suspect]
     Indication: PSYCHOTIC DISORDER
  3. RISPERIDONE [Concomitant]
     Dosage: UNK

REACTIONS (2)
  - Restlessness [Unknown]
  - Activation syndrome [Unknown]
